FAERS Safety Report 10560737 (Version 2)
Quarter: 2014Q4

REPORT INFORMATION
  Report Type: Spontaneous
  Country: US (occurrence: US)
  Receive Date: 20141103
  Receipt Date: 20141222
  Transmission Date: 20150529
  Serious: Yes (Hospitalization)
  Sender: FDA-Public Use
  Company Number: US-GILEAD-2014-0120831

PATIENT
  Age: 32 Year
  Sex: Male

DRUGS (2)
  1. LETAIRIS [Suspect]
     Active Substance: AMBRISENTAN
     Indication: PULMONARY HYPERTENSION
     Dosage: 10 MG, UNK
     Route: 065
     Dates: start: 20130502
  2. LETAIRIS [Suspect]
     Active Substance: AMBRISENTAN
     Indication: LANGERHANS^ CELL HISTIOCYTOSIS

REACTIONS (2)
  - Dyspnoea [Unknown]
  - Oedema peripheral [Unknown]
